FAERS Safety Report 8287763-2 (Version None)
Quarter: 2012Q2

REPORT INFORMATION
  Report Type: 
  Country: None (occurrence: None)
  Receive Date: 20120416
  Receipt Date: 20120405
  Transmission Date: 20120825
  Serious: Yes (Congenital Anomaly)
  Sender: FDA-Public Use
  Company Number: IT-MERCK-1203ITA00007B1

PATIENT
  Age: 0 Day

DRUGS (5)
  1. ATAZANAVIR SULFATE [Concomitant]
     Route: 065
     Dates: end: 20111001
  2. ISENTRESS [Suspect]
     Route: 065
     Dates: start: 20120201
  3. TENOFOVIR DISOPROXIL FUMARATE [Concomitant]
     Route: 065
     Dates: end: 20111001
  4. LOPINAVIR AND RITONAVIR [Concomitant]
     Route: 065
     Dates: start: 20120101, end: 20120201
  5. LAMIVUDINE AND ZIDOVUDINE [Concomitant]
     Route: 065
     Dates: start: 20120101

REACTIONS (2)
  - MATERNAL EXPOSURE DURING PREGNANCY [None]
  - TRISOMY 21 [None]
